FAERS Safety Report 10175286 (Version 1)
Quarter: 2014Q2

REPORT INFORMATION
  Report Type: Spontaneous
  Country: US (occurrence: US)
  Receive Date: 20140515
  Receipt Date: 20140515
  Transmission Date: 20141212
  Serious: No
  Sender: FDA-Public Use
  Company Number: US-VIVUS-2014V1000203

PATIENT
  Age: 55 Year
  Sex: Female
  Weight: 100.79 kg

DRUGS (5)
  1. QSYMIA 7.5MG/46MG [Suspect]
     Indication: WEIGHT DECREASED
     Route: 048
     Dates: start: 201403
  2. QSYMIA 3.75MG/23MG [Suspect]
     Indication: WEIGHT DECREASED
     Route: 048
     Dates: start: 201402, end: 201402
  3. NEURONTIN [Suspect]
     Indication: NECK PAIN
     Route: 048
     Dates: start: 201403, end: 201404
  4. LAMISIL [Suspect]
     Indication: FUNGAL INFECTION
     Route: 048
     Dates: start: 20140411
  5. IBUPROFEN [Concomitant]
     Indication: NECK PAIN
     Route: 048
     Dates: start: 2012

REACTIONS (5)
  - Fungal infection [Not Recovered/Not Resolved]
  - Mania [Recovered/Resolved]
  - Increased appetite [Recovered/Resolved]
  - Hunger [Recovered/Resolved]
  - Dysgeusia [Not Recovered/Not Resolved]
